FAERS Safety Report 14893027 (Version 1)
Quarter: 2018Q2

REPORT INFORMATION
  Report Type: Spontaneous
  Country: US (occurrence: US)
  Receive Date: 20180426
  Receipt Date: 20180426
  Transmission Date: 20180711
  Serious: Yes (Hospitalization)
  Sender: FDA-Public Use
  Company Number: None

PATIENT
  Age: 61 Year
  Sex: Female

DRUGS (13)
  1. APAP/CODEINE [Concomitant]
     Active Substance: ACETAMINOPHEN\CODEINE PHOSPHATE
  2. MOMETASONE [Concomitant]
     Active Substance: MOMETASONE
  3. TAC [Concomitant]
     Active Substance: TRIAMCINOLONE ACETONIDE
  4. METOPROLOL. [Concomitant]
     Active Substance: METOPROLOL
  5. METRONIDAZOLE. [Concomitant]
     Active Substance: METRONIDAZOLE
  6. ONDANSETRON [Concomitant]
     Active Substance: ONDANSETRON
  7. DIPHEN/ATROP [Concomitant]
     Active Substance: ATROPINE SULFATE\DIPHENOXYLATE
  8. ERIVEDGE [Suspect]
     Active Substance: VISMODEGIB
     Indication: MALIGNANT MELANOMA
     Route: 048
     Dates: start: 20170204
  9. VENLAFAXINE [Concomitant]
     Active Substance: VENLAFAXINE HYDROCHLORIDE
  10. PROMETHAZINE [Concomitant]
     Active Substance: PROMETHAZINE\PROMETHAZINE HYDROCHLORIDE
  11. FLUTICASONE. [Concomitant]
     Active Substance: FLUTICASONE
  12. NEO-POLY-HC [Concomitant]
  13. CARTIA XT [Concomitant]
     Active Substance: DILTIAZEM HYDROCHLORIDE

REACTIONS (1)
  - Gastric disorder [None]

NARRATIVE: CASE EVENT DATE: 2018
